FAERS Safety Report 13039629 (Version 1)
Quarter: 2016Q4

REPORT INFORMATION
  Report Type: Spontaneous
  Country: US (occurrence: US)
  Receive Date: 20161219
  Receipt Date: 20161219
  Transmission Date: 20170207
  Serious: Yes (Hospitalization)
  Sender: FDA-Public Use
  Company Number: US-ELI_LILLY_AND_COMPANY-US201612002946

PATIENT
  Sex: Male

DRUGS (7)
  1. POTASSIUM                          /00031402/ [Concomitant]
     Active Substance: POTASSIUM
  2. TORSEMIDE. [Concomitant]
     Active Substance: TORSEMIDE
  3. HUMALOG [Suspect]
     Active Substance: INSULIN LISPRO
     Indication: TYPE 2 DIABETES MELLITUS
     Dosage: BETWEEN 8-15 UNITS DAILY
     Route: 065
     Dates: start: 201609
  4. CARVEDIOL [Concomitant]
     Active Substance: CARVEDILOL
  5. PLAVIX [Concomitant]
     Active Substance: CLOPIDOGREL BISULFATE
  6. GABAPENTIN. [Concomitant]
     Active Substance: GABAPENTIN
  7. ATORVASTATIN [Concomitant]
     Active Substance: ATORVASTATIN

REACTIONS (2)
  - Infection [Recovered/Resolved]
  - Blood glucose abnormal [Recovered/Resolved]
